FAERS Safety Report 9690745 (Version 3)
Quarter: 2014Q1

REPORT INFORMATION
  Report Type: Report from Study
  Country: JP (occurrence: JP)
  Receive Date: 20131115
  Receipt Date: 20140307
  Transmission Date: 20141002
  Serious: Yes (Death, Hospitalization)
  Sender: FDA-Public Use
  Company Number: JP-SA-THYM-1001423

PATIENT
  Age: 64 Year
  Sex: Male

DRUGS (22)
  1. THYMOGLOBULINE [Suspect]
     Indication: BONE MARROW CONDITIONING REGIMEN
     Dosage: 175 MG, QD, INJECTION
     Route: 042
     Dates: start: 20090628, end: 20090629
  2. FLUDARABINE PHOSPHATE [Concomitant]
     Indication: PREMEDICATION
     Dosage: UNK
     Dates: start: 20090623, end: 20090628
  3. BUSULFAN [Concomitant]
     Indication: PREMEDICATION
     Dosage: UNK
     Dates: start: 20090626, end: 20090627
  4. METHYLPREDNISOLONE SODIUM SUCCINATE [Concomitant]
     Indication: PREMEDICATION
     Dosage: UNK
     Dates: start: 20090628
  5. CYTARABINE [Concomitant]
     Indication: PROPHYLAXIS AGAINST TRANSPLANT REJECTION
     Dosage: UNK
     Dates: start: 20090624, end: 20090625
  6. RAMOSETRON HYDROCHLORIDE [Concomitant]
     Indication: PROPHYLAXIS OF NAUSEA AND VOMITING
     Dosage: UNK
     Dates: start: 20090623, end: 20090629
  7. TOSUFLOXACIN TOSILATE [Concomitant]
     Indication: INFECTION PROPHYLAXIS
     Dosage: UNK
     Dates: start: 20090608, end: 20090629
  8. BACTRIM [Concomitant]
     Indication: INFECTION PROPHYLAXIS
     Dosage: UNK
     Dates: start: 20090428, end: 20090628
  9. VORICONAZOLE [Concomitant]
     Indication: INFECTION PROPHYLAXIS
     Dosage: UNK
     Dates: start: 20090611, end: 20090618
  10. ACICLOVIR [Concomitant]
     Indication: INFECTION PROPHYLAXIS
     Dosage: UNK
     Dates: start: 20090623, end: 20090705
  11. URSODEOXYCHOLIC ACID [Concomitant]
     Indication: PROPHYLAXIS
     Dosage: UNK
     Dates: start: 20090622, end: 20090705
  12. DALTEPARIN SODIUM [Concomitant]
     Indication: PROPHYLAXIS
     Dosage: UNK
     Dates: start: 20090622, end: 20090705
  13. TACROLIMUS [Concomitant]
     Indication: PROPHYLAXIS AGAINST GRAFT VERSUS HOST DISEASE
     Dosage: UNK
     Dates: start: 20090629, end: 20090705
  14. CHLORPHENIRAMINE MALEATE [Concomitant]
     Indication: PROPHYLAXIS
     Dosage: UNK
     Dates: start: 20090516, end: 20090704
  15. FILGRASTIM [Concomitant]
     Indication: PRODUCT USED FOR UNKNOWN INDICATION
     Dosage: UNK
     Dates: start: 20090701, end: 20090704
  16. SODIUM VALPROATE [Concomitant]
     Indication: PRODUCT USED FOR UNKNOWN INDICATION
     Dosage: UNK
     Dates: start: 20090625, end: 20090628
  17. ALL OTHER THERAPEUTIC PRODUCTS [Concomitant]
     Indication: PROPHYLAXIS
     Dosage: UNK
     Dates: start: 20090630, end: 20090630
  18. ITRACONAZOLE [Concomitant]
     Indication: INFECTION PROPHYLAXIS
     Dosage: UNK
     Dates: start: 20090428, end: 20090705
  19. LACTOMIN [Concomitant]
     Indication: DIARRHOEA
     Dosage: UNK
     Dates: start: 20090508, end: 20090705
  20. LANSOPRAZOLE [Concomitant]
     Indication: GASTRITIS PROPHYLAXIS
     Dosage: UNK
     Dates: start: 20090508, end: 20090705
  21. ALL OTHER THERAPEUTIC PRODUCTS [Concomitant]
     Indication: MYELODYSPLASTIC SYNDROME
     Dates: start: 20090506, end: 20090704
  22. RED BLOOD CELLS, CONCENTRATED [Concomitant]
     Indication: MYELODYSPLASTIC SYNDROME
     Dates: start: 20090428, end: 20090703

REACTIONS (5)
  - Subarachnoid haemorrhage [Fatal]
  - Hepatic function abnormal [Not Recovered/Not Resolved]
  - Bacterial sepsis [Fatal]
  - Meningitis bacterial [Fatal]
  - Febrile neutropenia [Not Recovered/Not Resolved]
